FAERS Safety Report 8646243 (Version 3)
Quarter: 2013Q2

REPORT INFORMATION
  Report Type: Spontaneous
  Country: TW (occurrence: TW)
  Receive Date: 20120702
  Receipt Date: 20130509
  Transmission Date: 20140414
  Serious: Yes (Hospitalization, Other)
  Sender: FDA-Public Use
  Company Number: TW-ABBOTT-12P-153-0931415-00

PATIENT
  Age: 53 Year
  Sex: Female
  Weight: 52 kg

DRUGS (1)
  1. HUMIRA 40 MG/ 0.8 ML PRE-FILLED SYRINGE [Suspect]
     Indication: RHEUMATOID ARTHRITIS
     Route: 058
     Dates: start: 20110725, end: 20120405

REACTIONS (25)
  - Ascites [Unknown]
  - Peritoneal tuberculosis [Unknown]
  - Pyrexia [Recovered/Resolved]
  - Pleural effusion [Unknown]
  - Ovarian cancer [Unknown]
  - Metastatic neoplasm [Unknown]
  - Musculoskeletal stiffness [Unknown]
  - Pain in extremity [Unknown]
  - Arthralgia [Unknown]
  - Menopause [Unknown]
  - Arthralgia [Unknown]
  - Insomnia [Unknown]
  - Chills [Unknown]
  - Pyrexia [Unknown]
  - Raynaud^s phenomenon [Unknown]
  - Pain in extremity [Unknown]
  - Alopecia [Unknown]
  - Osteoporosis [Unknown]
  - Unevaluable event [Unknown]
  - Rheumatoid arthritis [Unknown]
  - Systemic sclerosis [Unknown]
  - Systemic lupus erythematosus [Unknown]
  - Insomnia [Unknown]
  - Overlap syndrome [Unknown]
  - Oropharyngeal pain [Unknown]
